FAERS Safety Report 7952275-X (Version None)
Quarter: 2011Q4

REPORT INFORMATION
  Report Type: 
  Country: None (occurrence: None)
  Receive Date: 20111201
  Receipt Date: 20111123
  Transmission Date: 20120403
  Serious: Yes (Hospitalization)
  Sender: FDA-Public Use
  Company Number: BR-SANOFI-AVENTIS-2011SA077458

PATIENT
  Age: 59 Year
  Sex: Male
  Weight: 84 kg

DRUGS (6)
  1. LANTUS [Suspect]
     Indication: TYPE 2 DIABETES MELLITUS
     Route: 065
     Dates: start: 20101101
  2. GALVUS MET [Concomitant]
     Indication: TYPE 2 DIABETES MELLITUS
     Dosage: STRENGTH: 50 MG
     Route: 048
     Dates: start: 20111101
  3. DEFLAZACORT [Concomitant]
     Indication: ANTIBIOTIC THERAPY
     Dosage: STRENGTH: 30 MG
     Route: 048
     Dates: start: 20111001
  4. FLUOXETINE [Concomitant]
     Indication: ANTIDEPRESSANT THERAPY
     Dosage: STRENGTH: 20 MG
     Route: 048
     Dates: start: 20010101
  5. AUTOPEN 24 [Suspect]
     Indication: DEVICE THERAPY
     Dates: start: 20101101
  6. APIDRA [Suspect]
     Indication: TYPE 2 DIABETES MELLITUS
     Dosage: DOSAGE: 8 IU BEFORE LUNCH
     Route: 065
     Dates: start: 20101101

REACTIONS (7)
  - OTORRHOEA [None]
  - HYPERGLYCAEMIA [None]
  - MENINGITIS BACTERIAL [None]
  - PYREXIA [None]
  - LOSS OF CONSCIOUSNESS [None]
  - VOMITING [None]
  - NASOPHARYNGITIS [None]
